FAERS Safety Report 16858108 (Version 1)
Quarter: 2019Q3

REPORT INFORMATION
  Report Type: Spontaneous
  Country: DE (occurrence: DE)
  Receive Date: 20190926
  Receipt Date: 20190926
  Transmission Date: 20191005
  Serious: Yes (Hospitalization, Other)
  Sender: FDA-Public Use
  Company Number: DE-MYLANLABS-2019M1089864

PATIENT
  Sex: Male

DRUGS (8)
  1. CLOZAPINE. [Suspect]
     Active Substance: CLOZAPINE
     Dosage: 2 DOSAGE FORM  (150MG/50G)
     Route: 048
     Dates: start: 20190820, end: 2019
  2. CLOZAPINE. [Suspect]
     Active Substance: CLOZAPINE
     Dosage: 175 MILLIGRAM
     Route: 048
  3. MOVICOL [Concomitant]
     Active Substance: POLYETHYLENE GLYCOL 3350\POTASSIUM CHLORIDE\SODIUM BICARBONATE\SODIUM CHLORIDE
     Indication: CONSTIPATION
     Dosage: UNK UNK, PRN
     Route: 065
  4. QUETIAPINE. [Concomitant]
     Active Substance: QUETIAPINE
     Indication: DRUG THERAPY ENHANCEMENT
     Dosage: 1 UNK, UNK
     Route: 048
     Dates: start: 201803, end: 201812
  5. ONGENTYS [Concomitant]
     Active Substance: OPICAPONE
     Indication: ADJUVANT THERAPY
     Dosage: UNK
     Route: 065
  6. CLOZAPINE. [Suspect]
     Active Substance: CLOZAPINE
     Indication: DELUSIONAL DISORDER, UNSPECIFIED TYPE
     Dosage: UNK
     Route: 048
  7. DUODOPA [Suspect]
     Active Substance: CARBIDOPA\LEVODOPA
     Indication: PARKINSON^S DISEASE
     Dosage: (MD 1 ML; CRD 3.5 ML/H; CRN 2.6 ML/H; ED 1.1 ML, LONG-TERM)
     Route: 050
  8. MADOPAR LT [Concomitant]
     Active Substance: BENSERAZIDE HYDROCHLORIDE\LEVODOPA
     Indication: IMMOBILE
     Dosage: UNK UNK, PRN (100 MG/25 MG, AS REQUIRED)
     Route: 065

REACTIONS (8)
  - Cerebrovascular accident [Unknown]
  - Hallucination, visual [Unknown]
  - Psychotic disorder [Not Recovered/Not Resolved]
  - Hallucination, auditory [Unknown]
  - Dysphagia [Not Recovered/Not Resolved]
  - Intentional self-injury [Unknown]
  - Delusional disorder, unspecified type [Unknown]
  - Dysaesthesia [Unknown]

NARRATIVE: CASE EVENT DATE: 201809
